FAERS Safety Report 16660730 (Version 3)
Quarter: 2019Q3

REPORT INFORMATION
  Report Type: Report from Study
  Country: US (occurrence: US)
  Receive Date: 20190802
  Receipt Date: 20190813
  Transmission Date: 20191004
  Serious: Yes (Hospitalization, Other)
  Sender: FDA-Public Use
  Company Number: US-PFIZER INC-2019328141

PATIENT
  Age: 43 Year
  Sex: Female

DRUGS (5)
  1. EPINEPHRINE. [Suspect]
     Active Substance: EPINEPHRINE
     Indication: NERVE BLOCK
  2. PROCAINE HYDROCHLORIDE [Suspect]
     Active Substance: PROCAINE HYDROCHLORIDE
     Indication: LOCAL ANAESTHESIA
     Dosage: UNK , (INJECTION OF 2 CC. OF A 2 PER CENT PROCAINE HYDROCHLORIDE SOLUTION CONTAINING EPINEPHRINE HY)
  3. PROCAINE HYDROCHLORIDE [Suspect]
     Active Substance: PROCAINE HYDROCHLORIDE
     Indication: NERVE BLOCK
  4. BORIC ACID [Suspect]
     Active Substance: BORIC ACID
     Dosage: UNK
  5. EPINEPHRINE. [Suspect]
     Active Substance: EPINEPHRINE
     Indication: LOCAL ANAESTHESIA
     Dosage: UNK (INJECTION) (INJECTION OF 2 CC. OF A 2 PER CENT PROCAINE HYDROCHLORIDE SOLUTION CONTAINING EPIN)

REACTIONS (2)
  - Gangrene [Unknown]
  - Extremity necrosis [Unknown]
